FAERS Safety Report 7942168-6 (Version None)
Quarter: 2011Q4

REPORT INFORMATION
  Report Type: 
  Country: None (occurrence: None)
  Receive Date: 20111122
  Receipt Date: 20111110
  Transmission Date: 20120403
  Serious: Yes (Death)
  Sender: FDA-Public Use
  Company Number: 2011MA016424

PATIENT
  Age: 86 Year
  Sex: Female

DRUGS (1)
  1. ACYCLOVIR [Suspect]

REACTIONS (1)
  - RENAL FAILURE [None]
